FAERS Safety Report 8117015-2 (Version None)
Quarter: 2012Q1

REPORT INFORMATION
  Report Type: 
  Country: None (occurrence: None)
  Receive Date: 20120206
  Receipt Date: 20120203
  Transmission Date: 20120608
  Serious: Yes (Hospitalization)
  Sender: FDA-Public Use
  Company Number: US-AMGEN-USASP2012005877

PATIENT
  Sex: Male

DRUGS (2)
  1. NEUPOGEN [Suspect]
     Indication: NEUTROPENIA
  2. NEULASTA [Suspect]
     Indication: NEUTROPENIA

REACTIONS (2)
  - WHITE BLOOD CELL COUNT DECREASED [None]
  - BRONCHITIS VIRAL [None]
